FAERS Safety Report 5831140-8 (Version None)
Quarter: 2008Q3

REPORT INFORMATION
  Report Type: 
  Country: None (occurrence: None)
  Receive Date: 20080801
  Receipt Date: 20080423
  Transmission Date: 20090109
  Serious: No
  Sender: FDA-Public Use
  Company Number: US-BRISTOL-MYERS SQUIBB COMPANY-14162309

PATIENT
  Age: 64 Year
  Sex: Male
  Weight: 86 kg

DRUGS (2)
  1. COUMADIN [Suspect]
     Indication: POSTOPERATIVE THROMBOSIS
     Dosage: DOSAGE FORM=TABLET, STRENGTH 5 MG
  2. LIPITOR [Concomitant]

REACTIONS (1)
  - CHROMATURIA [None]
